FAERS Safety Report 15711877 (Version 4)
Quarter: 2020Q4

REPORT INFORMATION
  Report Type: Spontaneous
  Country: JP (occurrence: JP)
  Receive Date: 20181212
  Receipt Date: 20201222
  Transmission Date: 20210113
  Serious: Yes (Death, Other)
  Sender: FDA-Public Use
  Company Number: JP-009507513-1812JPN000983J

PATIENT
  Age: 48 Year
  Sex: Male
  Weight: 61 kg

DRUGS (55)
  1. ZINC OXIDE. [Concomitant]
     Active Substance: ZINC OXIDE
     Dosage: 500 GRAM, QD
     Route: 051
     Dates: start: 20181103, end: 20181103
  2. FILGRASTIM BS[BIOSIMILAR 1] [Concomitant]
     Dosage: 300 MICROGRAM
     Route: 041
     Dates: start: 20181031, end: 20181103
  3. SODIUM CHLORIDE. [Concomitant]
     Active Substance: SODIUM CHLORIDE
     Dosage: 2000 MILLILITER, FOR PRIMING
     Route: 051
     Dates: start: 20181031, end: 20181104
  4. VITAJECT [Concomitant]
     Active Substance: CYANOCOBALAMIN\PYRIDOXAMINE HYDROCHLORIDE\THIAMINE HYDROCHLORIDE
     Dosage: 1 DOSAGE FORM, USING BOMP
     Route: 051
     Dates: start: 20181031, end: 20181118
  5. FENTANYL. [Concomitant]
     Active Substance: FENTANYL
     Dosage: 1 MILLIGRAM
     Route: 041
     Dates: start: 20181031, end: 20181101
  6. PIPERACILLIN NA [Concomitant]
     Dosage: 0.4G ~ 4G
     Route: 041
     Dates: start: 20181031, end: 20181104
  7. NICARDIPINE HYDROCHLORIDE. [Concomitant]
     Active Substance: NICARDIPINE HYDROCHLORIDE
     Dosage: 20 MILLIGRAM
     Route: 041
     Dates: start: 20181031, end: 20181031
  8. SODIUM PHOSPHATE [Concomitant]
     Active Substance: SODIUM PHOSPHATE
     Dosage: 40ML ~ 80ML, USING SYRINGE PUMP (30ML / H OR LESS)
     Route: 051
     Dates: start: 20181102, end: 20181105
  9. FILGRASTIM BS[BIOSIMILAR 1] [Concomitant]
     Dosage: 150 MICROGRAM
     Route: 041
     Dates: start: 20181031, end: 20181102
  10. SODIUM CHLORIDE. [Concomitant]
     Active Substance: SODIUM CHLORIDE
     Dosage: 2000 MILLILITER, FOR PRIMING
     Route: 051
     Dates: start: 20181105, end: 20181107
  11. SODIUM CHLORIDE INJECTION [Concomitant]
     Active Substance: SODIUM CHLORIDE
     Dosage: 20 MILLILITER, FOR FLUSH
     Route: 051
     Dates: start: 20181031, end: 20181105
  12. VICCLOX [Concomitant]
     Active Substance: ACYCLOVIR SODIUM
     Dosage: 250MG ~ 500MG
     Route: 051
     Dates: start: 20181031, end: 20181107
  13. AMBISOME [Concomitant]
     Active Substance: AMPHOTERICIN B
     Dosage: 300MG ~ 18000MG
     Route: 041
     Dates: start: 20181031, end: 20181118
  14. SODIUM CHLORIDE. [Concomitant]
     Active Substance: SODIUM CHLORIDE
     Dosage: 100 MILLILITER, USING PUMP (MORE THAN 30 ML / H)
     Route: 051
     Dates: start: 20181105, end: 20181105
  15. HEPARIN [Concomitant]
     Active Substance: HEPARIN SODIUM
     Dosage: 7 MILLILITER
     Route: 041
     Dates: start: 20181105, end: 20181105
  16. NEXIUM [Concomitant]
     Active Substance: ESOMEPRAZOLE MAGNESIUM
     Dosage: 20 MILLIGRAM, QD, AFTER BREAKFAST
     Route: 048
     Dates: start: 20181031, end: 20181118
  17. FLORID [Concomitant]
     Active Substance: MICONAZOLE
     Dosage: 1.25 GRAM, QID,AFTER EVERY MEAL / BEFORE GOING TO BED
     Route: 048
     Dates: start: 20181031, end: 20181104
  18. HEPARIN [Concomitant]
     Active Substance: HEPARIN SODIUM
     Dosage: 5 MILLILITER, FOR PRIMING
     Dates: start: 20181031, end: 20181103
  19. PRECEDEX [Concomitant]
     Active Substance: DEXMEDETOMIDINE HYDROCHLORIDE
     Dosage: 1 DOSAGE FORM
     Route: 051
     Dates: start: 20181031, end: 20181031
  20. ZOSYN [Concomitant]
     Active Substance: PIPERACILLIN SODIUM\TAZOBACTAM SODIUM
     Dosage: 2 DOSAGE FORM
     Route: 041
     Dates: start: 20181031, end: 20181031
  21. KIDMIN [Concomitant]
     Active Substance: AMINO ACIDS\ELECTROLYTES NOS
     Dosage: 600 MILLILITER, USING BOMP
     Route: 051
     Dates: start: 20181031, end: 20181118
  22. NICARDIPINE HYDROCHLORIDE. [Concomitant]
     Active Substance: NICARDIPINE HYDROCHLORIDE
     Dosage: 60 MILLIGRAM,USE SYRINGE PUMP (30 ML / H OR LESS)
     Route: 051
     Dates: start: 20181031, end: 20181101
  23. PRECEDEX [Concomitant]
     Active Substance: DEXMEDETOMIDINE HYDROCHLORIDE
     Dosage: 1-2 CYLINDERS, SYRINGE PUMP USED (30 ML / H OR LESS)
     Route: 051
     Dates: start: 20181031, end: 20181101
  24. PREVYMIS [Suspect]
     Active Substance: LETERMOVIR
     Indication: ANTIVIRAL PROPHYLAXIS
     Dosage: 480MG ~ 960MG, ONCE A DAY, AFTER BREAKFAST
     Route: 048
     Dates: start: 20181031, end: 20181108
  25. NOVOLIN R [Concomitant]
     Active Substance: INSULIN HUMAN
     Dosage: 50 MILLILITER, USING PUMP (30 ML / H OR LESS)
     Route: 051
     Dates: start: 20181031, end: 20181111
  26. BICANATE [Concomitant]
     Dosage: 1000ML ~ 4000ML, FOR CIRCUIT INJECTION
     Route: 051
     Dates: start: 20181031, end: 20181106
  27. INTRALIPOS [Concomitant]
     Active Substance: SOYBEAN OIL
     Dosage: 100 MILLILITER, USING PUMP (30 ML / H OR LESS)
     Route: 051
     Dates: start: 20181031, end: 20181031
  28. GLUCOSE D [Concomitant]
     Dosage: 100ML ~ 200ML
     Route: 051
     Dates: start: 20181031, end: 20181107
  29. LASIX [Concomitant]
     Active Substance: FUROSEMIDE
     Dosage: 20 MILLIGRAM,ONE-SHOT
     Route: 051
     Dates: start: 20181031, end: 20181031
  30. HEPARIN NA LOCK [Concomitant]
     Active Substance: HEPARIN SODIUM
     Dosage: 1 DOSAGE FORM,FOR FRANCHE
     Route: 051
     Dates: start: 20181031, end: 20181031
  31. SODIUM CHLORIDE. [Concomitant]
     Active Substance: SODIUM CHLORIDE
     Dosage: 750 MILLILITER
     Route: 041
     Dates: start: 20181031, end: 20181104
  32. GLUCOSE D [Concomitant]
     Dosage: 30 MILLILITER, ONE SHOT
     Route: 051
     Dates: start: 20181031, end: 20181118
  33. KCL [Concomitant]
     Active Substance: POTASSIUM CHLORIDE
     Dosage: 20ML ~ 60ML
     Route: 041
     Dates: start: 20181104, end: 20181109
  34. CELLCEPT [Concomitant]
     Active Substance: MYCOPHENOLATE MOFETIL\MYCOPHENOLATE MOFETIL HYDROCHLORIDE
     Dosage: 8 TO 16 CAPSULES, TWICE A DAY, AFTER BREAKFAST AND DINNER
     Route: 048
     Dates: start: 20181031, end: 20181105
  35. SODIUM CHLORIDE. [Concomitant]
     Active Substance: SODIUM CHLORIDE
     Dosage: 100ML ~ 3950ML
     Route: 041
     Dates: start: 20181031, end: 20181118
  36. ELEMENMIC [Concomitant]
     Active Substance: CUPRIC SULFATE\FERRIC CHLORIDE\MANGANESE CHLORIDE\POTASSIUM IODIDE\ZINC SULFATE
     Dosage: 1 DOSAGE FORM, USING BOMP
     Route: 051
     Dates: start: 20181031, end: 20181118
  37. SODIUM CHLORIDE INJECTION [Concomitant]
     Active Substance: SODIUM CHLORIDE
     Dosage: 80 MILLILITER, USING BOMP
     Route: 051
     Dates: start: 20181031, end: 20181118
  38. SODIUM CHLORIDE. [Concomitant]
     Active Substance: SODIUM CHLORIDE
     Dosage: 100 MILLILITER
     Route: 041
     Dates: start: 20181031, end: 20181108
  39. FUNGUARD [Concomitant]
     Active Substance: MICAFUNGIN SODIUM
     Dosage: 75MG ~ 150MG
     Route: 041
     Dates: start: 20181031, end: 20181118
  40. GLUCOSE D [Concomitant]
     Dosage: 200 MILLILITER
     Route: 041
     Dates: start: 20181031, end: 20181118
  41. INTRALIPOS [Concomitant]
     Active Substance: SOYBEAN OIL
     Dosage: 100ML ~ 200ML, USING BOMP (MORE THAN 30ML / H)
     Route: 051
     Dates: start: 20181101, end: 20181118
  42. SODIUM CHLORIDE. [Concomitant]
     Active Substance: SODIUM CHLORIDE
     Dosage: 100 MILLILITER
     Route: 041
     Dates: start: 20181105, end: 20181105
  43. SODIUM CHLORIDE. [Concomitant]
     Active Substance: SODIUM CHLORIDE
     Dosage: 50 MILLILITER
     Route: 051
     Dates: start: 20181031, end: 20181110
  44. E KEPPRA [Concomitant]
     Active Substance: LEVETIRACETAM
     Dosage: 500 MILLIGRAM
     Route: 051
     Dates: start: 20181031, end: 20181118
  45. PREDONINE [Concomitant]
     Active Substance: PREDNISOLONE
     Dosage: 20MG ~ 120MG
     Route: 041
     Dates: start: 20181031, end: 20181118
  46. HEPARIN [Concomitant]
     Active Substance: HEPARIN SODIUM
     Dosage: 5 MILLILITER, FOR PRIMING
     Dates: start: 20181105, end: 20181106
  47. SODIUM CHLORIDE. [Concomitant]
     Active Substance: SODIUM CHLORIDE
     Dosage: 250 MILLILITER, FOR CIRCUIT INJECTION
     Route: 051
     Dates: start: 20181031, end: 20181107
  48. KCL [Concomitant]
     Active Substance: POTASSIUM CHLORIDE
     Dosage: 40 MILLILITER, USING BOMP
     Route: 051
     Dates: start: 20181031, end: 20181107
  49. PROPOFOL. [Concomitant]
     Active Substance: PROPOFOL
     Dosage: 100 MILLILITER
     Route: 041
     Dates: start: 20181031, end: 20181031
  50. VANCOMYCIN [Concomitant]
     Active Substance: VANCOMYCIN
     Dosage: 0.3 GRAM, USING PUMP (MORE THAN 30 ML / H)
     Route: 051
     Dates: start: 20181105, end: 20181105
  51. GLUCOSE D [Concomitant]
     Dosage: 150ML ~ 250ML
     Route: 041
     Dates: start: 20181031, end: 20181117
  52. NAFAMOSTAT MESILATE [Concomitant]
     Active Substance: NAFAMOSTAT MESYLATE
     Dosage: 100ML ~ 160ML, FOR CIRCUIT INJECTION
     Route: 051
     Dates: start: 20181101, end: 20181107
  53. HICALIQ RF [Concomitant]
     Active Substance: CALCIUM GLUCONATE\DEXTROSE\MAGNESIUM SULFATE\POTASSIUM ACETATE\POTASSIUM PHOSPHATE, DIBASIC\ZINC SULFATE
     Dosage: 600 MILLILITER, USING BOMP
     Route: 051
     Dates: start: 20181031, end: 20181118
  54. BROMHEXINE HYDROCHLORIDE [Concomitant]
     Active Substance: BROMHEXINE HYDROCHLORIDE
     Dosage: 12 MILLIGRAM,ONE-SHOT
     Route: 051
     Dates: start: 20181031, end: 20181118
  55. HEPARIN SODIUM. [Concomitant]
     Active Substance: HEPARIN SODIUM
     Dosage: 4G ~ 6G
     Route: 041
     Dates: start: 20181031, end: 20181113

REACTIONS (4)
  - Pain [Unknown]
  - Cytomegalovirus test positive [Recovering/Resolving]
  - Candida sepsis [Fatal]
  - Product use issue [Unknown]

NARRATIVE: CASE EVENT DATE: 2018
